FAERS Safety Report 8593807-0 (Version None)
Quarter: 2012Q3

REPORT INFORMATION
  Report Type: 
  Country: None (occurrence: None)
  Receive Date: 20120803
  Receipt Date: 20120803
  Transmission Date: 20120928
  Serious: No
  Sender: FDA-Public Use
  Company Number: None

PATIENT
  Age: 59 Year
  Sex: Male
  Weight: 83.6 kg

DRUGS (1)
  1. HYDROXYCHLOROQUINE SULFATE [Suspect]
     Indication: RHEUMATOID ARTHRITIS
     Dosage: MG PO
     Route: 048
     Dates: start: 20070703, end: 20120621

REACTIONS (3)
  - MACULOPATHY [None]
  - TOXICITY TO VARIOUS AGENTS [None]
  - VISUAL ACUITY REDUCED [None]
